FAERS Safety Report 16643057 (Version 1)
Quarter: 2019Q3

REPORT INFORMATION
  Report Type: Spontaneous
  Country: IT (occurrence: IT)
  Receive Date: 20190729
  Receipt Date: 20190729
  Transmission Date: 20191004
  Serious: Yes (Other)
  Sender: FDA-Public Use
  Company Number: IT-OTSUKA-2019_027601

PATIENT
  Age: 41 Year
  Sex: Female

DRUGS (3)
  1. CETIRIZINE [Suspect]
     Active Substance: CETIRIZINE HYDROCHLORIDE
     Indication: DRUG ABUSE
     Dosage: 50 MG, SINGLE
     Route: 048
     Dates: start: 20190215, end: 20190215
  2. ABILIFY [Suspect]
     Active Substance: ARIPIPRAZOLE
     Indication: DRUG ABUSE
     Dosage: 105 MG, SINGLE
     Route: 048
     Dates: start: 20190215, end: 20190215
  3. DELORAZEPAM [Suspect]
     Active Substance: DELORAZEPAM
     Indication: DRUG ABUSE
     Dosage: 4 G, SINGLE
     Route: 048
     Dates: start: 20190215, end: 20190215

REACTIONS (7)
  - Psychotic disorder [Recovering/Resolving]
  - Poisoning [Recovering/Resolving]
  - Overdose [Unknown]
  - Headache [Recovering/Resolving]
  - Product use in unapproved indication [Unknown]
  - Confusional state [Recovering/Resolving]
  - Psychomotor hyperactivity [Recovering/Resolving]

NARRATIVE: CASE EVENT DATE: 20190215
